FAERS Safety Report 20136926 (Version 4)
Quarter: 2022Q1

REPORT INFORMATION
  Report Type: Report from Study
  Country: CA (occurrence: CA)
  Receive Date: 20211201
  Receipt Date: 20220310
  Transmission Date: 20220423
  Serious: Yes (Other)
  Sender: FDA-Public Use
  Company Number: CA-OTSUKA-2021_034344

PATIENT
  Age: 81 Year
  Sex: Male

DRUGS (2)
  1. CEDAZURIDINE\DECITABINE [Suspect]
     Active Substance: CEDAZURIDINE\DECITABINE
     Indication: Myelodysplastic syndrome
     Dosage: (35 MG OF DECITABINE AND 100 MG OF CEDAZURIDINE) ON 3 PILLS, DAY 3
     Route: 065
     Dates: start: 20210922
  2. CEDAZURIDINE\DECITABINE [Suspect]
     Active Substance: CEDAZURIDINE\DECITABINE
     Dosage: 5 TABLETS PER CYCLE
     Route: 065
     Dates: end: 20220308

REACTIONS (6)
  - Packed red blood cell transfusion [Unknown]
  - Platelet count abnormal [Unknown]
  - Nausea [Recovering/Resolving]
  - Product use issue [Unknown]
  - Therapy interrupted [Unknown]
  - Therapy cessation [Unknown]

NARRATIVE: CASE EVENT DATE: 20220308
